FAERS Safety Report 14186190 (Version 3)
Quarter: 2018Q4

REPORT INFORMATION
  Report Type: Spontaneous
  Country: FR (occurrence: FR)
  Receive Date: 20171114
  Receipt Date: 20181030
  Transmission Date: 20190204
  Serious: Yes (Other)
  Sender: FDA-Public Use
  Company Number: FR-MERCK KGAA-2033959

PATIENT
  Age: 51 Year
  Sex: Male
  Weight: 97 kg

DRUGS (1)
  1. EUTHYROX [Suspect]
     Active Substance: LEVOTHYROXINE SODIUM
     Indication: AUTOIMMUNE THYROIDITIS
     Dates: start: 201703, end: 201709

REACTIONS (27)
  - Weight increased [None]
  - Muscle spasms [None]
  - Myalgia [None]
  - Crying [None]
  - Nausea [None]
  - Asthenia [None]
  - Mood swings [None]
  - Palpitations [None]
  - Gastrointestinal motility disorder [None]
  - Alopecia [None]
  - Irritability [None]
  - Insomnia [None]
  - Vertigo [None]
  - Diarrhoea [None]
  - Dizziness [None]
  - Stress [None]
  - Abdominal pain upper [None]
  - Fatigue [None]
  - Dyspnoea [None]
  - Cardiac disorder [None]
  - Major depression [None]
  - Disturbance in attention [None]
  - Affective disorder [None]
  - Blood thyroid stimulating hormone increased [Recovering/Resolving]
  - Anger [None]
  - Fear of disease [None]
  - Decreased interest [None]

NARRATIVE: CASE EVENT DATE: 2017
